FAERS Safety Report 14125507 (Version 1)
Quarter: 2017Q4

REPORT INFORMATION
  Report Type: Spontaneous
  Country: DE (occurrence: DE)
  Receive Date: 20171025
  Receipt Date: 20171025
  Transmission Date: 20180321
  Serious: Yes (Other)
  Sender: FDA-Public Use
  Company Number: DE-TEVA-817250GER

PATIENT
  Sex: Female

DRUGS (1)
  1. ATORVASTATIN ABZ 20 MG FILMTABLETTEN [Suspect]
     Active Substance: ATORVASTATIN
     Route: 048

REACTIONS (3)
  - Epistaxis [Unknown]
  - Diarrhoea haemorrhagic [Unknown]
  - Gingival bleeding [Unknown]
